FAERS Safety Report 12104938 (Version 1)
Quarter: 2016Q1

REPORT INFORMATION
  Report Type: Report from Study
  Country: KR (occurrence: KR)
  Receive Date: 20160223
  Receipt Date: 20160223
  Transmission Date: 20160526
  Serious: Yes (Hospitalization)
  Sender: FDA-Public Use
  Company Number: KR-IPCA LABORATORIES LIMITED-IPC201602-000252

PATIENT
  Age: 47 Year
  Sex: Female

DRUGS (1)
  1. ALLOPURINOL. [Suspect]
     Active Substance: ALLOPURINOL
     Indication: GOUT

REACTIONS (3)
  - Eyelid irritation [Recovered/Resolved]
  - Conjunctival hyperaemia [Recovered/Resolved]
  - Stevens-Johnson syndrome [Recovering/Resolving]
